FAERS Safety Report 16284175 (Version 3)
Quarter: 2019Q2

REPORT INFORMATION
  Report Type: Report from Study
  Country: None (occurrence: US)
  Receive Date: 20190507
  Receipt Date: 20190621
  Transmission Date: 20190711
  Serious: Yes (Other)
  Sender: FDA-Public Use
  Company Number: US-ABBVIE-19K-163-2770020-00

PATIENT
  Age: 55 Year
  Sex: Female

DRUGS (1)
  1. HUMIRA [Suspect]
     Active Substance: ADALIMUMAB
     Indication: RHEUMATOID ARTHRITIS
     Route: 058
     Dates: start: 2017

REACTIONS (3)
  - Rheumatoid arthritis [Not Recovered/Not Resolved]
  - Giant cell tumour of tendon sheath [Recovering/Resolving]
  - Parathyroid disorder [Recovered/Resolved]

NARRATIVE: CASE EVENT DATE: 2017
